FAERS Safety Report 8398849-6 (Version None)
Quarter: 2012Q2

REPORT INFORMATION
  Report Type: 
  Country: None (occurrence: None)
  Receive Date: 20120531
  Receipt Date: 20120524
  Transmission Date: 20120825
  Serious: Yes (Hospitalization)
  Sender: FDA-Public Use
  Company Number: ZA-ABBOTT-12P-143-0931890-00

PATIENT
  Sex: Female

DRUGS (12)
  1. CELEBREX [Concomitant]
     Indication: INFLAMMATION
  2. LAMICTAL [Concomitant]
     Indication: FIBROMYALGIA
     Route: 048
  3. FEMODENE [Concomitant]
     Indication: CONTRACEPTION
     Route: 048
     Dates: start: 20000101
  4. AMITRIPTYLINE HCL [Concomitant]
     Indication: FIBROMYALGIA
     Route: 048
  5. ZOPLICONE [Concomitant]
     Indication: INSOMNIA
     Route: 048
  6. CELEBREX [Concomitant]
     Indication: PAIN
     Route: 048
  7. MINOGRAINE [Concomitant]
     Indication: PRODUCT USED FOR UNKNOWN INDICATION
  8. GERICOMPLEX [Concomitant]
     Indication: VITAMIN SUPPLEMENTATION
     Route: 048
  9. CYMBLATA [Concomitant]
     Indication: FIBROMYALGIA
     Route: 048
  10. HUMIRA [Suspect]
     Indication: ANKYLOSING SPONDYLITIS
     Route: 058
     Dates: start: 20100101
  11. VARENICLINE TARTRATE [Suspect]
     Indication: SMOKING CESSATION THERAPY
  12. TOPAMAX [Concomitant]
     Indication: FIBROMYALGIA
     Route: 048

REACTIONS (3)
  - VIRAEMIA [None]
  - MIGRAINE [None]
  - ANXIETY [None]
